FAERS Safety Report 10921583 (Version 1)
Quarter: 2015Q1

REPORT INFORMATION
  Report Type: Spontaneous
  Country: US (occurrence: None)
  Receive Date: 20150313
  Receipt Date: 20150313
  Transmission Date: 20150721
  Serious: Yes (Life-Threatening, Hospitalization, Other)
  Sender: FDA-Public Use
  Company Number: None

PATIENT
  Age: 69 Year
  Sex: Male
  Weight: 87.9 kg

DRUGS (1)
  1. TOPIRAMATE. [Suspect]
     Active Substance: TOPIRAMATE
     Indication: TREMOR
     Dosage: 25 MG AT BEDTIME PO
     Route: 048
     Dates: start: 20150225, end: 20150302

REACTIONS (6)
  - Infection [None]
  - Blood creatine phosphokinase increased [None]
  - Hypothermia [None]
  - Pyrexia [None]
  - Mental status changes [None]
  - Blood creatinine increased [None]

NARRATIVE: CASE EVENT DATE: 20150302
